FAERS Safety Report 10912879 (Version 1)
Quarter: 2015Q1

REPORT INFORMATION
  Report Type: Spontaneous
  Country: US (occurrence: None)
  Receive Date: 20150310
  Receipt Date: 20150310
  Transmission Date: 20150721
  Serious: Yes (Hospitalization)
  Sender: FDA-Public Use
  Company Number: None

PATIENT
  Age: 67 Year
  Sex: Male
  Weight: 83.7 kg

DRUGS (1)
  1. CARFILZOMIB [Suspect]
     Active Substance: CARFILZOMIB
     Indication: PLASMA CELL MYELOMA
     Route: 042

REACTIONS (5)
  - Infusion related reaction [None]
  - Chest X-ray abnormal [None]
  - Pyrexia [None]
  - Hypoxia [None]
  - Pneumonitis [None]

NARRATIVE: CASE EVENT DATE: 20131127
